FAERS Safety Report 24973060 (Version 1)
Quarter: 2025Q1

REPORT INFORMATION
  Report Type: Spontaneous
  Country: US (occurrence: US)
  Receive Date: 20250216
  Receipt Date: 20250216
  Transmission Date: 20250408
  Serious: No
  Sender: GLAXOSMITHKLINE
  Company Number: US-GSK-US2025007523

PATIENT
  Sex: Female

DRUGS (1)
  1. NUCALA [Suspect]
     Active Substance: MEPOLIZUMAB
     Indication: Asthma
     Dosage: UNK UNK, Q4W, ONE INJECTION EVERY 28 DAYS

REACTIONS (3)
  - Dyspnoea [Unknown]
  - Symptom recurrence [Unknown]
  - Therapeutic response shortened [Unknown]
